FAERS Safety Report 8414699-6 (Version None)
Quarter: 2012Q2

REPORT INFORMATION
  Report Type: 
  Country: None (occurrence: None)
  Receive Date: 20120605
  Receipt Date: 20120526
  Transmission Date: 20120825
  Serious: Yes (Hospitalization)
  Sender: FDA-Public Use
  Company Number: FR-MERCK-1204FRA00093

PATIENT
  Age: 92 Year
  Sex: Male
  Weight: 73 kg

DRUGS (6)
  1. RABEPRAZOLE SODIUM [Concomitant]
     Indication: OESOPHAGITIS
     Route: 048
  2. FENOFIBRATE [Concomitant]
     Indication: DYSLIPIDAEMIA
     Route: 048
  3. JANUMET [Suspect]
     Indication: TYPE 2 DIABETES MELLITUS
     Route: 048
     Dates: start: 20100309, end: 20120215
  4. FERROUS SULFATE [Concomitant]
     Indication: ANAEMIA
     Route: 048
  5. ALFUZOSIN HYDROCHLORIDE [Concomitant]
     Indication: PROSTATIC ADENOMA
     Route: 048
  6. FENOTEROL HYDROBROMIDE AND IPRATROPIUM BROMIDE [Concomitant]
     Indication: DYSPNOEA
     Route: 055

REACTIONS (1)
  - BLADDER TRANSITIONAL CELL CARCINOMA STAGE III [None]
